FAERS Safety Report 6536941-9 (Version None)
Quarter: 2010Q1

REPORT INFORMATION
  Report Type: 
  Country: None (occurrence: None)
  Receive Date: 20100113
  Receipt Date: 20100112
  Transmission Date: 20100710
  Serious: Yes (Other)
  Sender: FDA-Public Use
  Company Number: FR-AMGEN-UK343459

PATIENT
  Sex: Female

DRUGS (6)
  1. ROMIPLOSTIM [Suspect]
     Indication: MYELODYSPLASTIC SYNDROME
     Route: 042
     Dates: start: 20080618
  2. ARANESP [Concomitant]
     Route: 058
     Dates: start: 20080201
  3. VITAMIN K TAB [Concomitant]
     Route: 048
     Dates: start: 20080910
  4. TELMISARTAN [Concomitant]
     Route: 048
     Dates: start: 20040101
  5. LODOZ [Concomitant]
     Route: 048
     Dates: start: 20040101
  6. TOPLEXIL [Concomitant]
     Dates: start: 20090201

REACTIONS (1)
  - PHLEBITIS [None]
